FAERS Safety Report 7295122-4 (Version None)
Quarter: 2011Q1

REPORT INFORMATION
  Report Type: 
  Country: None (occurrence: None)
  Receive Date: 20110216
  Receipt Date: 20110207
  Transmission Date: 20110831
  Serious: Yes (Hospitalization)
  Sender: FDA-Public Use
  Company Number: DE-SANOFI-AVENTIS-2011SA000839

PATIENT
  Age: 66 Year
  Sex: Female
  Weight: 63 kg

DRUGS (7)
  1. BETA BLOCKING AGENTS [Concomitant]
     Route: 065
  2. DRONEDARONE [Suspect]
     Route: 048
  3. DIOVANE [Concomitant]
     Route: 048
  4. HYDROCHLOROTHIAZIDE [Concomitant]
     Route: 048
  5. CARVEDILOL [Concomitant]
     Route: 048
  6. AMIODARONE HCL [Suspect]
     Route: 048
  7. MARCUMAR [Concomitant]
     Dosage: DOSAGE: ACCORDING TO INR
     Route: 065

REACTIONS (4)
  - ALOPECIA [None]
  - HYPERTENSION [None]
  - PHOTOSENSITIVITY REACTION [None]
  - ATRIAL FIBRILLATION [None]
